FAERS Safety Report 8171043-X (Version None)
Quarter: 2012Q1

REPORT INFORMATION
  Report Type: 
  Country: None (occurrence: None)
  Receive Date: 20120228
  Receipt Date: 20120217
  Transmission Date: 20120608
  Serious: Yes (Other)
  Sender: FDA-Public Use
  Company Number: PHHY2012DE007941

PATIENT
  Sex: Female

DRUGS (3)
  1. CLOZAPINE [Suspect]
     Indication: SCHIZOPHRENIA
     Dosage: 100 MG, QD
     Route: 048
     Dates: start: 20010101
  2. ESCITALOPRAM [Concomitant]
     Dosage: 20 MG/DAY
  3. ABILIFY [Concomitant]
     Dosage: 30 MG/DAY

REACTIONS (2)
  - HEPATIC STEATOSIS [None]
  - HEPATIC ENZYME ABNORMAL [None]
